FAERS Safety Report 14671647 (Version 2)
Quarter: 2018Q3

REPORT INFORMATION
  Report Type: Report from Study
  Country: JP (occurrence: JP)
  Receive Date: 20180323
  Receipt Date: 20180709
  Transmission Date: 20181010
  Serious: Yes (Death, Life-Threatening, Other)
  Sender: FDA-Public Use
  Company Number: JP-ALEXION PHARMACEUTICALS INC.-A201502210

PATIENT
  Age: 9 Month
  Sex: Male
  Weight: 4.6 kg

DRUGS (8)
  1. SAWACILLIN [Concomitant]
     Active Substance: AMOXICILLIN
     Indication: INFECTION PROPHYLAXIS
     Dosage: 45 MG, TID
     Route: 065
     Dates: start: 20150604, end: 20150813
  2. NORVASC [Concomitant]
     Active Substance: AMLODIPINE BESYLATE
     Indication: HYPERTENSION
     Dosage: 0.40 MG, QD
     Route: 048
     Dates: start: 20150806, end: 20150813
  3. LONGES [Concomitant]
     Active Substance: LISINOPRIL
     Indication: HYPERTENSION
     Dosage: 0.08 MG, QD
     Route: 048
     Dates: start: 20150526, end: 20150529
  4. SOLIRIS [Suspect]
     Active Substance: ECULIZUMAB
     Indication: HAEMOLYTIC URAEMIC SYNDROME
     Dosage: 300 MG, QW
     Route: 042
     Dates: start: 20150519, end: 20150526
  5. SOLIRIS [Suspect]
     Active Substance: ECULIZUMAB
     Dosage: 300 MG, ONCE 3 WEEKS
     Route: 042
     Dates: start: 20150616, end: 20150727
  6. SEPAMIT [Concomitant]
     Active Substance: NIFEDIPINE
     Indication: HYPERTENSION
     Dosage: 4 MG, BID
     Route: 048
     Dates: start: 20150529, end: 20150813
  7. PERDIPINE [Concomitant]
     Active Substance: NICARDIPINE HYDROCHLORIDE
     Indication: HYPERTENSION
     Dosage: 3?10 GAMMA
     Route: 042
     Dates: start: 20150512, end: 20150813
  8. MICARDIS [Concomitant]
     Active Substance: TELMISARTAN
     Indication: HYPERTENSION
     Dosage: 2 MG, QD
     Route: 048
     Dates: start: 20150525, end: 20150629

REACTIONS (6)
  - Sinus node dysfunction [Fatal]
  - Hypervolaemia [Fatal]
  - Thrombotic microangiopathy [Not Recovered/Not Resolved]
  - Cardiac failure [Fatal]
  - Device related infection [Recovered/Resolved]
  - Bacillus infection [Recovered/Resolved]

NARRATIVE: CASE EVENT DATE: 201505
